FAERS Safety Report 13178305 (Version 3)
Quarter: 2017Q2

REPORT INFORMATION
  Report Type: Report from Study
  Country: CA (occurrence: CA)
  Receive Date: 20170202
  Receipt Date: 20170428
  Transmission Date: 20170830
  Serious: Yes (Hospitalization)
  Sender: FDA-Public Use
  Company Number: CA-ROCHE-1886990

PATIENT
  Sex: Female

DRUGS (1)
  1. ERIVEDGE [Suspect]
     Active Substance: VISMODEGIB
     Indication: BASAL CELL CARCINOMA
     Route: 048
     Dates: start: 20160820, end: 201701

REACTIONS (3)
  - Localised infection [Not Recovered/Not Resolved]
  - Alopecia [Not Recovered/Not Resolved]
  - Foot fracture [Not Recovered/Not Resolved]
